FAERS Safety Report 18549997 (Version 5)
Quarter: 2024Q4

REPORT INFORMATION
  Report Type: Report from Study
  Country: DE (occurrence: DE)
  Receive Date: 20201126
  Receipt Date: 20241211
  Transmission Date: 20250115
  Serious: Yes (Other)
  Sender: NOVARTIS
  Company Number: PHHY2018DE012644

PATIENT
  Age: 11 Year
  Sex: Female
  Weight: 41 kg

DRUGS (5)
  1. ILARIS [Suspect]
     Active Substance: CANAKINUMAB
     Indication: Chronic infantile neurological cutaneous and articular syndrome
     Dosage: 150 MG (3 MG/KG BODY WEIGHT, EVERY 8 WEEKS)
     Route: 058
     Dates: start: 20171010
  2. ILARIS [Suspect]
     Active Substance: CANAKINUMAB
     Dosage: 90 MG
     Route: 058
     Dates: start: 20180602
  3. ILARIS [Suspect]
     Active Substance: CANAKINUMAB
     Dosage: 90 MG
     Route: 058
     Dates: start: 20180722
  4. CANAKINUMAB [Concomitant]
     Active Substance: CANAKINUMAB
     Indication: Product used for unknown indication
     Dosage: UNK (INTERVAL WAS SHORTENED FROM EVERY 6 WEEKS TO EVERY)
     Route: 065
     Dates: start: 20240516, end: 20241120
  5. CANAKINUMAB [Concomitant]
     Active Substance: CANAKINUMAB
     Dosage: UNK (INTERVAL WAS EXTENDED TO EVERY 6 WEEKS 150MG EVE, INTERVAL WAS EXTENDED TO EVERY 6 WEEKS   150M
     Route: 065
     Dates: start: 20241120

REACTIONS (22)
  - Helminthic infection [Recovered/Resolved]
  - Faecal calprotectin increased [Not Recovered/Not Resolved]
  - Abdominal pain [Not Recovered/Not Resolved]
  - Infection [Recovered/Resolved]
  - Diarrhoea [Recovered/Resolved]
  - Upper respiratory tract infection [Recovered/Resolved]
  - Cough [Recovered/Resolved]
  - Cough [Recovered/Resolved]
  - Pyrexia [Recovered/Resolved]
  - Pyrexia [Recovered/Resolved]
  - Nasopharyngitis [Recovered/Resolved]
  - Headache [Recovered/Resolved]
  - Nasopharyngitis [Recovered/Resolved]
  - Oral herpes [Recovered/Resolved]
  - Chalazion [Recovered/Resolved]
  - Erythema [Recovered/Resolved]
  - Inflammatory marker increased [Unknown]
  - Drug ineffective [Recovering/Resolving]
  - Infection susceptibility increased [Recovering/Resolving]
  - Hypoacusis [Recovering/Resolving]
  - Headache [Not Recovered/Not Resolved]
  - Blood lactate dehydrogenase increased [Not Recovered/Not Resolved]

NARRATIVE: CASE EVENT DATE: 20171010
